FAERS Safety Report 9110264 (Version 4)
Quarter: 2013Q2

REPORT INFORMATION
  Report Type: Spontaneous
  Country: US (occurrence: US)
  Receive Date: 20130222
  Receipt Date: 20130507
  Transmission Date: 20140414
  Serious: No
  Sender: FDA-Public Use
  Company Number: US-PFIZER INC-2013062912

PATIENT
  Age: 55 Year
  Sex: Female
  Weight: 53.97 kg

DRUGS (4)
  1. LEVOXYL [Suspect]
     Indication: THYROID HORMONE REPLACEMENT THERAPY
     Dosage: 550 UG, A WEEK (78.5 MCG A DAY)
     Route: 048
     Dates: start: 20120420
  2. LEVOXYL [Suspect]
     Dosage: 50 UG: 1X/DAY FOR 4 DAYS/WEEK, 2X/DAY FOR 2 DAYS/WEEK, 1 AND HALF TABLET OF 50UG FOR 1 DAY/WEEK
     Route: 048
     Dates: start: 201212
  3. VITAMIN D3 [Concomitant]
     Indication: VITAMIN SUPPLEMENTATION
     Dosage: 2000 IU, 1X/DAY (DAILY) (1000 INTL UNITS, 2 TABS ONCE A DAY)
     Route: 048
  4. CALCIUM CARBONATE [Concomitant]
     Indication: SUPPLEMENTATION THERAPY
     Dosage: 1000 MG, 1X/DAY (DAILY)

REACTIONS (15)
  - Psychomotor hyperactivity [Not Recovered/Not Resolved]
  - Nervousness [Not Recovered/Not Resolved]
  - Insomnia [Not Recovered/Not Resolved]
  - Blood thyroid stimulating hormone decreased [Unknown]
  - Hyperhidrosis [Unknown]
  - Palpitations [Unknown]
  - Hot flush [Unknown]
  - Chest pain [Unknown]
  - Muscle spasms [Unknown]
  - Dyspnoea [Unknown]
  - Dysphonia [Unknown]
  - Dysphagia [Unknown]
  - Temperature intolerance [Unknown]
  - Anxiety [Not Recovered/Not Resolved]
  - Drug intolerance [Unknown]
